FAERS Safety Report 7441423-6 (Version None)
Quarter: 2011Q2

REPORT INFORMATION
  Report Type: 
  Country: None (occurrence: None)
  Receive Date: 20110428
  Receipt Date: 20110419
  Transmission Date: 20111010
  Serious: Yes (Hospitalization)
  Sender: FDA-Public Use
  Company Number: JP-JNJFOC-20100906014

PATIENT
  Age: 56 Year
  Sex: Female
  Weight: 44 kg

DRUGS (9)
  1. ACTOS [Concomitant]
     Indication: DIABETES MELLITUS
     Route: 048
  2. MELBIN [Concomitant]
     Indication: DIABETES MELLITUS
     Route: 048
  3. RISPERDAL CONSTA [Suspect]
     Indication: SCHIZOPHRENIA
     Route: 030
  4. CONTOMIN [Concomitant]
     Route: 048
  5. DEPAKENE [Concomitant]
     Route: 048
  6. LEVOMEPROMAZINE MALEATE [Concomitant]
     Route: 048
  7. PENTOBARBITAL CAP [Concomitant]
     Route: 048
  8. MAGNESIUM OXIDE [Concomitant]
     Indication: CONSTIPATION
     Route: 048
  9. SENNOSIDE [Concomitant]
     Indication: CONSTIPATION
     Route: 048

REACTIONS (1)
  - HYPONATRAEMIA [None]
